FAERS Safety Report 18443316 (Version 2)
Quarter: 2020Q4

REPORT INFORMATION
  Report Type: Spontaneous
  Country: CO (occurrence: CO)
  Receive Date: 20201029
  Receipt Date: 20201124
  Transmission Date: 20210114
  Serious: Yes (Hospitalization, Other)
  Sender: FDA-Public Use
  Company Number: CO-009507513-2010COL009947

PATIENT

DRUGS (3)
  1. ISENTRESS [Suspect]
     Active Substance: RALTEGRAVIR POTASSIUM
     Dosage: UNK UNK, Q12H
     Route: 064
  2. ATAZANAVIR SULFATE (+) RITONAVIR [Suspect]
     Active Substance: ATAZANAVIR SULFATE\RITONAVIR
     Route: 064
  3. FTC [Suspect]
     Active Substance: EMTRICITABINE
     Route: 064

REACTIONS (3)
  - Foetal growth restriction [Unknown]
  - Neonatal disorder [Unknown]
  - Low birth weight baby [Unknown]
